FAERS Safety Report 10241275 (Version 1)
Quarter: 2014Q2

REPORT INFORMATION
  Report Type: Spontaneous
  Country: US (occurrence: US)
  Receive Date: 20140617
  Receipt Date: 20140617
  Transmission Date: 20141212
  Serious: No
  Sender: FDA-Public Use
  Company Number: US-PFIZER INC-2014162525

PATIENT
  Age: 10 Year
  Sex: Male
  Weight: 44.44 kg

DRUGS (4)
  1. LYRICA [Suspect]
     Indication: CONVULSION
     Dosage: 75 MG, UNK
     Dates: start: 2011
  2. LYRICA [Suspect]
     Indication: CRANIOCEREBRAL INJURY
     Dosage: 100 MG, UNK
     Dates: start: 2012
  3. LYRICA [Suspect]
     Dosage: 150 MG, UNK
     Dates: start: 201304
  4. LYRICA [Suspect]
     Dosage: 200 MG, 2X/DAY

REACTIONS (7)
  - Cough [Not Recovered/Not Resolved]
  - Inflammation [Not Recovered/Not Resolved]
  - Swelling [Not Recovered/Not Resolved]
  - Rash macular [Not Recovered/Not Resolved]
  - Blister [Not Recovered/Not Resolved]
  - Rash [Not Recovered/Not Resolved]
  - Sensation of foreign body [Not Recovered/Not Resolved]
